FAERS Safety Report 12964315 (Version 2)
Quarter: 2019Q3

REPORT INFORMATION
  Report Type: Spontaneous
  Country: US (occurrence: US)
  Receive Date: 20161122
  Receipt Date: 20190701
  Transmission Date: 20191004
  Serious: No
  Sender: FDA-Public Use
  Company Number: US-PFIZER INC-2016533498

PATIENT
  Age: 60 Year
  Sex: Female

DRUGS (18)
  1. VALSARTAN. [Suspect]
     Active Substance: VALSARTAN
     Dosage: UNK
  2. CEPHALEXIN. [Suspect]
     Active Substance: CEPHALEXIN
  3. KEFLEX [Suspect]
     Active Substance: CEPHALEXIN
     Dosage: UNK
  4. PROTONIX [Suspect]
     Active Substance: PANTOPRAZOLE SODIUM
     Dosage: UNK
  5. OXAPROZIN. [Suspect]
     Active Substance: OXAPROZIN
     Dosage: UNK
  6. IODIXANOL. [Suspect]
     Active Substance: IODIXANOL
     Dosage: UNK
  7. FLUTICASONE/SALMETEROL [Suspect]
     Active Substance: FLUTICASONE PROPIONATE\SALMETEROL XINAFOATE
  8. LAMOTRIGINE. [Suspect]
     Active Substance: LAMOTRIGINE
     Dosage: UNK
  9. BUPROPION HCL [Suspect]
     Active Substance: BUPROPION HYDROCHLORIDE
  10. TOLTERODINE TARTRATE. [Suspect]
     Active Substance: TOLTERODINE TARTRATE
     Dosage: UNK
  11. CELECOXIB. [Suspect]
     Active Substance: CELECOXIB
     Dosage: UNK
  12. AMITRIPTYLINE [Suspect]
     Active Substance: AMITRIPTYLINE
     Dosage: UNK
  13. LOVASTATIN. [Suspect]
     Active Substance: LOVASTATIN
     Dosage: UNK
  14. DULOXETINE. [Suspect]
     Active Substance: DULOXETINE
     Dosage: UNK
  15. BUSPIRONE [Suspect]
     Active Substance: BUSPIRONE HYDROCHLORIDE
  16. BUPROPION. [Suspect]
     Active Substance: BUPROPION
  17. BUSPAR [Suspect]
     Active Substance: BUSPIRONE HYDROCHLORIDE
     Dosage: UNK
  18. SERTRALINE HCL [Suspect]
     Active Substance: SERTRALINE HYDROCHLORIDE

REACTIONS (1)
  - Drug hypersensitivity [Unknown]
